FAERS Safety Report 23151567 (Version 1)
Quarter: 2023Q4

REPORT INFORMATION
  Report Type: Spontaneous
  Country: US (occurrence: US)
  Receive Date: 20231107
  Receipt Date: 20231107
  Transmission Date: 20240110
  Serious: No
  Sender: FDA-Public Use
  Company Number: US-Accord-371079

PATIENT
  Sex: Female
  Weight: 77.11 kg

DRUGS (1)
  1. LEVOTHYROXINE SODIUM [Suspect]
     Active Substance: LEVOTHYROXINE SODIUM
     Indication: Hypothyroidism
     Dosage: 137MCG, DAILY
     Route: 048
     Dates: start: 202210

REACTIONS (4)
  - Fatigue [Unknown]
  - Brain fog [Unknown]
  - Product substitution issue [Unknown]
  - Blood thyroid stimulating hormone abnormal [Unknown]
